FAERS Safety Report 21827117 (Version 1)
Quarter: 2023Q1

REPORT INFORMATION
  Report Type: Spontaneous
  Country: US (occurrence: US)
  Receive Date: 20230106
  Receipt Date: 20230106
  Transmission Date: 20230417
  Serious: No
  Sender: FDA-Public Use
  Company Number: US-COOPERSURGICAL, INC.-US-2022CPS000457

PATIENT
  Age: 20 Year
  Sex: Female
  Weight: 87.075 kg

DRUGS (7)
  1. PARAGARD T 380A [Suspect]
     Active Substance: COPPER
     Indication: Contraception
     Dosage: UNK
     Route: 015
     Dates: start: 20210430, end: 20220222
  2. BUPROPION [Concomitant]
     Active Substance: BUPROPION
     Indication: Product used for unknown indication
     Dosage: UNK
     Route: 065
  3. ELLA [LIDOCAINE HYDROCHLORIDE;PRILOCAINE HYDROCHLORIDE] [Concomitant]
     Indication: Product used for unknown indication
     Dosage: UNK
     Route: 065
  4. FLUCONAZOLE [Concomitant]
     Active Substance: FLUCONAZOLE
     Indication: Product used for unknown indication
     Dosage: UNK
     Route: 065
  5. LEVOTHYROXINE [Concomitant]
     Active Substance: LEVOTHYROXINE
     Indication: Product used for unknown indication
     Dosage: UNK
     Route: 065
  6. SPIRONOLACTONE [Concomitant]
     Active Substance: SPIRONOLACTONE
     Indication: Product used for unknown indication
     Dosage: UNK
     Route: 065
  7. CEPHALEXIN [Concomitant]
     Active Substance: CEPHALEXIN
     Indication: Product used for unknown indication
     Dosage: UNK
     Route: 065

REACTIONS (2)
  - Sensation of foreign body [Recovered/Resolved]
  - Device expulsion [Recovered/Resolved]

NARRATIVE: CASE EVENT DATE: 20220207
